FAERS Safety Report 11512391 (Version 1)
Quarter: 2015Q3

REPORT INFORMATION
  Report Type: Spontaneous
  Country: US (occurrence: US)
  Receive Date: 20150916
  Receipt Date: 20150916
  Transmission Date: 20151125
  Serious: No
  Sender: FDA-Public Use
  Company Number: US-GLENMARK PHARMACEUTICALS INC, USA.-2014GMK010046

PATIENT
  Age: 20 Year
  Sex: Female

DRUGS (6)
  1. AIRBORNE [Concomitant]
     Active Substance: HERBALS\MINERALS\VITAMINS
     Dosage: 1 DF, PRN
     Route: 048
  2. CONTRACEPTIVES [Concomitant]
     Active Substance: UNSPECIFIED INGREDIENT
     Dosage: UNK
  3. MULTIVITAMIN                       /07504101/ [Concomitant]
     Active Substance: VITAMINS
     Dosage: UNK, QD
  4. NORETHINDRONE ACETATE TABLETS [Suspect]
     Active Substance: NORETHINDRONE ACETATE
     Dosage: UNK, QD
     Route: 048
     Dates: start: 201110, end: 201206
  5. LUPRON DEPOT-PED [Suspect]
     Active Substance: LEUPROLIDE ACETATE
     Dosage: 11.25 MG, EVERY 3 MONTHS
     Dates: start: 201110, end: 201206
  6. LOESTRIN NOS [Concomitant]
     Active Substance: ETHINYL ESTRADIOL\NORETHINDRONE ACETATE
     Dosage: 1 DF, QD
     Route: 048

REACTIONS (20)
  - Libido decreased [Not Recovered/Not Resolved]
  - Decreased appetite [Not Recovered/Not Resolved]
  - Depression [Not Recovered/Not Resolved]
  - Pollakiuria [Recovered/Resolved]
  - Arthralgia [Recovered/Resolved]
  - Gastrooesophageal reflux disease [Not Recovered/Not Resolved]
  - Chills [Recovered/Resolved]
  - Bursitis [Recovered/Resolved]
  - Mood swings [Recovered/Resolved]
  - Nausea [Not Recovered/Not Resolved]
  - Vulvovaginal dryness [Not Recovered/Not Resolved]
  - Menorrhagia [Not Recovered/Not Resolved]
  - Condition aggravated [Not Recovered/Not Resolved]
  - Insomnia [Recovered/Resolved]
  - Fatigue [Not Recovered/Not Resolved]
  - Hot flush [Recovered/Resolved]
  - Arthropathy [Not Recovered/Not Resolved]
  - Pelvic pain [Not Recovered/Not Resolved]
  - Weight increased [Not Recovered/Not Resolved]
  - Menstruation irregular [Not Recovered/Not Resolved]

NARRATIVE: CASE EVENT DATE: 201110
